FAERS Safety Report 24527391 (Version 1)
Quarter: 2024Q4

REPORT INFORMATION
  Report Type: Report from Study
  Country: IT (occurrence: IT)
  Receive Date: 20241021
  Receipt Date: 20241021
  Transmission Date: 20250114
  Serious: No
  Sender: ROCHE
  Company Number: IT-ROCHE-3561221

PATIENT
  Age: 43 Year
  Sex: Female

DRUGS (1)
  1. LUNSUMIO [Suspect]
     Active Substance: MOSUNETUZUMAB-AXGB
     Indication: Follicular lymphoma
     Route: 065

REACTIONS (1)
  - Rash [Recovering/Resolving]
